FAERS Safety Report 7411870-7 (Version None)
Quarter: 2011Q2

REPORT INFORMATION
  Report Type: 
  Country: None (occurrence: None)
  Receive Date: 20110413
  Receipt Date: 20110401
  Transmission Date: 20111010
  Serious: Yes (Hospitalization)
  Sender: FDA-Public Use
  Company Number: GB-JNJFOC-20070404019

PATIENT
  Age: 9 Year
  Sex: Female

DRUGS (4)
  1. IBUPROFEN [Suspect]
     Indication: PYREXIA
     Route: 048
  2. PARACETAMOL [Suspect]
     Route: 048
  3. PARACETAMOL [Suspect]
     Indication: PYREXIA
     Route: 048
  4. CEFTRIAXONE [Suspect]
     Indication: SEPSIS
     Route: 042

REACTIONS (7)
  - HYDROURETER [None]
  - NEPHROLITHIASIS [None]
  - ABDOMINAL PAIN [None]
  - HYDRONEPHROSIS [None]
  - URETERIC OBSTRUCTION [None]
  - RENAL FAILURE ACUTE [None]
  - RENAL PAPILLARY NECROSIS [None]
